FAERS Safety Report 4327569-X (Version None)
Quarter: 2004Q1

REPORT INFORMATION
  Report Type: 
  Country: None (occurrence: None)
  Receive Date: 20040330
  Receipt Date: 20040330
  Transmission Date: 20041129
  Serious: No
  Sender: FDA-Public Use
  Company Number: None

PATIENT
  Sex: Female
  Weight: 68.0396 kg

DRUGS (2)
  1. PAXIL [Suspect]
     Indication: ANXIETY
     Dosage: 40 MG DAILY
     Dates: start: 20011010, end: 20040324
  2. PAXIL [Suspect]
     Indication: DEPRESSION
     Dosage: 40 MG DAILY
     Dates: start: 20011010, end: 20040324

REACTIONS (1)
  - DRUG WITHDRAWAL SYNDROME [None]
